FAERS Safety Report 5441247-5 (Version None)
Quarter: 2007Q3

REPORT INFORMATION
  Report Type: 
  Country: None (occurrence: None)
  Receive Date: 20070901
  Receipt Date: 20070822
  Transmission Date: 20080115
  Serious: Yes (Other)
  Sender: FDA-Public Use
  Company Number: US-PFIZER INC-2007070676

PATIENT
  Sex: Female
  Weight: 90.7 kg

DRUGS (5)
  1. LYRICA [Suspect]
     Indication: FIBROMYALGIA
     Dates: start: 20060101, end: 20060101
  2. KLONOPIN [Concomitant]
  3. TOPAMAX [Concomitant]
  4. CYMBALTA [Concomitant]
  5. TYLENOL (CAPLET) [Concomitant]

REACTIONS (12)
  - APHASIA [None]
  - BEDRIDDEN [None]
  - BREAST DISCHARGE [None]
  - DIPLOPIA [None]
  - FACIAL BONES FRACTURE [None]
  - FALL [None]
  - FEELING ABNORMAL [None]
  - HYPOAESTHESIA [None]
  - HYPOTENSION [None]
  - MIGRAINE [None]
  - SOMNOLENCE [None]
  - VERTIGO [None]
